FAERS Safety Report 8242311-8 (Version None)
Quarter: 2012Q1

REPORT INFORMATION
  Report Type: 
  Country: None (occurrence: None)
  Receive Date: 20120329
  Receipt Date: 20120325
  Transmission Date: 20120608
  Serious: No
  Sender: FDA-Public Use
  Company Number: US-PFIZER INC-2012076666

PATIENT
  Sex: Male

DRUGS (1)
  1. ALAVERT [Suspect]
     Dosage: UNK

REACTIONS (5)
  - SKIN REACTION [None]
  - RASH GENERALISED [None]
  - HYPERTENSION [None]
  - BLOOD CHOLESTEROL INCREASED [None]
  - SKIN DISORDER [None]
